FAERS Safety Report 11560289 (Version 2)
Quarter: 2016Q1

REPORT INFORMATION
  Report Type: Report from Study
  Country: US (occurrence: US)
  Receive Date: 20150928
  Receipt Date: 20160321
  Transmission Date: 20160525
  Serious: Yes (Hospitalization, Other)
  Sender: FDA-Public Use
  Company Number: US-ABBVIE-15K-163-1467764-00

PATIENT
  Age: 31 Year
  Sex: Female
  Weight: 80.81 kg

DRUGS (1)
  1. HUMIRA [Suspect]
     Active Substance: ADALIMUMAB
     Indication: COLITIS ULCERATIVE
     Dosage: 8-9 MONTHS
     Route: 058
     Dates: start: 2015, end: 201509

REACTIONS (3)
  - Anal abscess [Not Recovered/Not Resolved]
  - Anal fistula [Recovering/Resolving]
  - Drug specific antibody present [Not Recovered/Not Resolved]

NARRATIVE: CASE EVENT DATE: 201509
